FAERS Safety Report 26138830 (Version 1)
Quarter: 2025Q4

REPORT INFORMATION
  Report Type: Spontaneous
  Country: CN (occurrence: CN)
  Receive Date: 20251210
  Receipt Date: 20251210
  Transmission Date: 20260117
  Serious: Yes (Hospitalization)
  Sender: ROCHE
  Company Number: CN-CHEPLA-2025013715

PATIENT
  Age: 57 Year
  Sex: Male
  Weight: 65 kg

DRUGS (5)
  1. GANCICLOVIR [Suspect]
     Active Substance: GANCICLOVIR
     Indication: Symptomatic treatment
     Dosage: APPROVAL NO. GYZZ H20053363
     Route: 042
     Dates: start: 20251109, end: 20251118
  2. GANCICLOVIR [Suspect]
     Active Substance: GANCICLOVIR
     Indication: Cytomegalovirus infection
     Dosage: APPROVAL NO. GYZZ H20053363
     Route: 042
     Dates: start: 20251108, end: 20251118
  3. VALGANCICLOVIR [Suspect]
     Active Substance: VALGANCICLOVIR
     Indication: Symptomatic treatment
     Dosage: APPROVAL NO. H20150330/BATCH NO. REPORTED AS UNKNOWN
     Route: 048
     Dates: start: 20251119, end: 20251126
  4. VALGANCICLOVIR [Suspect]
     Active Substance: VALGANCICLOVIR
     Indication: Cytomegalovirus infection
     Route: 048
  5. VALGANCICLOVIR [Suspect]
     Active Substance: VALGANCICLOVIR
     Dosage: THE DOSE OF VALGANCICLOVIR WAS ADJUSTED TO 450MG PO Q48H
     Route: 048
     Dates: start: 20251126

REACTIONS (2)
  - Myelosuppression [Not Recovered/Not Resolved]
  - Off label use [Unknown]

NARRATIVE: CASE EVENT DATE: 20251119
